FAERS Safety Report 21665125 (Version 3)
Quarter: 2022Q4

REPORT INFORMATION
  Report Type: Spontaneous
  Country: US (occurrence: US)
  Receive Date: 20221130
  Receipt Date: 20221229
  Transmission Date: 20230113
  Serious: Yes (Hospitalization)
  Sender: FDA-Public Use
  Company Number: US-ABBVIE-4217672

PATIENT
  Sex: Female

DRUGS (12)
  1. CARBIDOPA\LEVODOPA [Suspect]
     Active Substance: CARBIDOPA\LEVODOPA
     Indication: Parkinson^s disease
     Route: 050
     Dates: start: 2020
  2. CARBIDOPA\LEVODOPA [Suspect]
     Active Substance: CARBIDOPA\LEVODOPA
  3. DESMOPRESSIN [Concomitant]
     Active Substance: DESMOPRESSIN
     Indication: Incontinence
     Route: 065
  4. EZETIMIBE [Concomitant]
     Active Substance: EZETIMIBE
     Indication: Product used for unknown indication
     Route: 065
  5. PANTOPRAZOLE [Concomitant]
     Active Substance: PANTOPRAZOLE
     Indication: Product used for unknown indication
     Route: 065
  6. RYTARY [Concomitant]
     Active Substance: CARBIDOPA\LEVODOPA
     Indication: Parkinson^s disease
     Route: 065
  7. OSMOLEX ER [Concomitant]
     Active Substance: AMANTADINE
     Indication: Dyskinesia
     Route: 065
  8. ROSUVASTATIN [Concomitant]
     Active Substance: ROSUVASTATIN
     Indication: Blood cholesterol abnormal
     Route: 065
  9. GABAPENTIN [Concomitant]
     Active Substance: GABAPENTIN
     Indication: Product used for unknown indication
     Route: 065
  10. MIRTAZAPINE [Concomitant]
     Active Substance: MIRTAZAPINE
     Indication: Depression
     Route: 065
  11. LISINOPRIL [Concomitant]
     Active Substance: LISINOPRIL
     Indication: Blood pressure management
     Route: 065
  12. CLOZAPINE [Concomitant]
     Active Substance: CLOZAPINE
     Indication: Sleep disorder therapy
     Route: 065

REACTIONS (13)
  - Intestinal fistula [Not Recovered/Not Resolved]
  - Hypophagia [Recovering/Resolving]
  - Stoma site inflammation [Recovering/Resolving]
  - Living in residential institution [Unknown]
  - Weight decreased [Recovered/Resolved with Sequelae]
  - Nausea [Not Recovered/Not Resolved]
  - Vomiting [Recovered/Resolved]
  - Stoma site irritation [Not Recovered/Not Resolved]
  - Device dislocation [Not Recovered/Not Resolved]
  - Device issue [Not Recovered/Not Resolved]
  - Dehydration [Recovered/Resolved]
  - Weight decreased [Recovering/Resolving]
  - Intussusception [Not Recovered/Not Resolved]

NARRATIVE: CASE EVENT DATE: 20220101
